FAERS Safety Report 8443969 (Version 5)
Quarter: 2013Q2

REPORT INFORMATION
  Report Type: Spontaneous
  Country: US (occurrence: None)
  Receive Date: 20120223
  Receipt Date: 20130603
  Transmission Date: 20140414
  Serious: Yes (Hospitalization, Other)
  Sender: FDA-Public Use
  Company Number: AUR-APL-2012-01008

PATIENT
  Age: 62 Year
  Sex: Female
  Weight: 61 kg

DRUGS (4)
  1. ALPRAZOLAM [Suspect]
     Indication: PANIC ATTACK
     Dosage: 8 MG (2 MG, 4 IN 1 D)
  2. VENLAFAXINE [Suspect]
     Indication: DEPRESSION
     Dates: start: 2011, end: 2011
  3. EFFEXOR XR [Suspect]
     Indication: DEPRESSION
  4. CODEINE SULFATE [Suspect]
     Indication: PAIN

REACTIONS (29)
  - Treatment noncompliance [None]
  - Lymphadenopathy [None]
  - Pyrexia [None]
  - Hyperhidrosis [None]
  - Musculoskeletal disorder [None]
  - Bronchitis [None]
  - Mental disorder [None]
  - Anger [None]
  - Death of relative [None]
  - Headache [None]
  - Incorrect dose administered [None]
  - Economic problem [None]
  - Product quality issue [None]
  - Fall [None]
  - Drug ineffective [None]
  - Spinal operation [None]
  - Joint swelling [None]
  - Intervertebral disc protrusion [None]
  - Thrombosis [None]
  - Syncope [None]
  - Wrist fracture [None]
  - Facial bones fracture [None]
  - Periorbital haematoma [None]
  - Hand fracture [None]
  - Sinus disorder [None]
  - Back injury [None]
  - Panic attack [None]
  - Psychomotor hyperactivity [None]
  - Pain [None]
